FAERS Safety Report 23611526 (Version 2)
Quarter: 2024Q1

REPORT INFORMATION
  Report Type: Spontaneous
  Country: MX (occurrence: MX)
  Receive Date: 20240308
  Receipt Date: 20240311
  Transmission Date: 20240410
  Serious: Yes (Death, Hospitalization, Other)
  Sender: FDA-Public Use
  Company Number: MX-SA-SAC20230419001347

PATIENT

DRUGS (1)
  1. LARONIDASE [Suspect]
     Active Substance: LARONIDASE
     Indication: Mucopolysaccharidosis I
     Dosage: 5 U, Q8D
     Route: 042
     Dates: start: 20161011, end: 20240223

REACTIONS (2)
  - Respiratory arrest [Fatal]
  - Pneumonia [Unknown]

NARRATIVE: CASE EVENT DATE: 20230101
